FAERS Safety Report 15495297 (Version 1)
Quarter: 2018Q4

REPORT INFORMATION
  Report Type: Spontaneous
  Country: GB (occurrence: GB)
  Receive Date: 20181013
  Receipt Date: 20181013
  Transmission Date: 20190205
  Serious: Yes (Other)
  Sender: FDA-Public Use
  Company Number: GB-TEVA-2018-GB-963930

PATIENT
  Age: 54 Year
  Sex: Female
  Weight: 53 kg

DRUGS (11)
  1. ALENDRONIC ACID [Concomitant]
     Active Substance: ALENDRONIC ACID
     Dosage: (PLEASE READ INSTRUCTIONS) FOR B...
     Dates: start: 20170814
  2. CALCIUM CARBONATE. [Concomitant]
     Active Substance: CALCIUM CARBONATE
     Dosage: 2 DOSAGE FORMS DAILY; BUT NOT ON DAY THAT TAKES ...
     Dates: start: 20170815
  3. AMITRIPTYLINE HYDROCHLORIDE. [Concomitant]
     Active Substance: AMITRIPTYLINE HYDROCHLORIDE
     Dosage: TAKE 1-2 AT NIGHT AS DIRECTED BY CONSULTANT
     Dates: start: 20170905, end: 20180829
  4. MYCOPHENOLATE MOFETIL. [Suspect]
     Active Substance: MYCOPHENOLATE MOFETIL
     Dates: start: 20180917
  5. TYPHIM VI [Concomitant]
     Active Substance: SALMONELLA TYPHI TY2 VI POLYSACCHARIDE ANTIGEN
     Dates: start: 20180727, end: 20180727
  6. MAROL PROLONGED RELEASE [Concomitant]
     Active Substance: TRAMADOL HYDROCHLORIDE
     Dosage: 3 DOSAGE FORMS DAILY; PROLONGED RELEASE
     Dates: start: 20180129
  7. METHOTREXATE. [Concomitant]
     Active Substance: METHOTREXATE
     Dosage: 8 TABLETS
     Dates: start: 20180122, end: 20180724
  8. FOLIC ACID. [Concomitant]
     Active Substance: FOLIC ACID
     Dosage: AS DIRECTED
     Dates: start: 20180122
  9. FEXOFENADINE [Concomitant]
     Active Substance: FEXOFENADINE\FEXOFENADINE HYDROCHLORIDE
     Dosage: 1 DOSAGE FORMS DAILY;
     Dates: start: 20160414
  10. RANITIDINE. [Concomitant]
     Active Substance: RANITIDINE
     Dosage: 2 DOSAGE FORMS DAILY;
     Dates: start: 20180601, end: 20180829
  11. CLARITHROMYCIN. [Concomitant]
     Active Substance: CLARITHROMYCIN
     Dosage: 2 DOSAGE FORMS DAILY;
     Dates: start: 20180626, end: 20180701

REACTIONS (3)
  - Rash maculo-papular [Recovering/Resolving]
  - Pruritus generalised [Recovering/Resolving]
  - Swollen tongue [Recovering/Resolving]

NARRATIVE: CASE EVENT DATE: 20180917
